FAERS Safety Report 20999437 (Version 1)
Quarter: 2022Q2

REPORT INFORMATION
  Report Type: Spontaneous
  Country: US (occurrence: US)
  Receive Date: 20220623
  Receipt Date: 20220623
  Transmission Date: 20220721
  Serious: No
  Sender: FDA-Public Use
  Company Number: US-APOTEX-2021AP045463

PATIENT

DRUGS (3)
  1. PENTOXIFYLLINE [Suspect]
     Active Substance: PENTOXIFYLLINE
     Indication: Radiation fibrosis
     Dosage: UNK UNK, QD
     Route: 050
  2. TYLENOL [Concomitant]
     Active Substance: ACETAMINOPHEN
     Indication: Fibrosis
     Dosage: UNK
     Route: 065
  3. DIETARY SUPPLEMENT [Concomitant]
     Active Substance: DIETARY SUPPLEMENT
     Indication: Product used for unknown indication
     Dosage: UNK
     Route: 065

REACTIONS (2)
  - Wrong technique in product usage process [Unknown]
  - Incorrect dose administered [Unknown]
